FAERS Safety Report 19443485 (Version 1)
Quarter: 2021Q2

REPORT INFORMATION
  Report Type: Spontaneous
  Country: LB (occurrence: LB)
  Receive Date: 20210621
  Receipt Date: 20210621
  Transmission Date: 20210717
  Serious: Yes (Other)
  Sender: FDA-Public Use
  Company Number: LB-AMGEN-LBNSP2021091855

PATIENT
  Age: 84 Year
  Sex: Male

DRUGS (14)
  1. PROSCAR [Concomitant]
     Active Substance: FINASTERIDE
  2. CYNT [MOXONIDINE] [Concomitant]
     Active Substance: MOXONIDINE
     Dosage: 0.4 MILLIGRAM
  3. MOBIC [Concomitant]
     Active Substance: MELOXICAM
     Dosage: 0.4 MILLIGRAM
  4. LIPITOR [Concomitant]
     Active Substance: ATORVASTATIN CALCIUM
     Dosage: 20 MILLIGRAM
  5. LECARDIP [Concomitant]
     Active Substance: LERCANIDIPINE HYDROCHLORIDE
     Dosage: 20 MILLIGRAM
  6. ONE ALPHA [Concomitant]
     Active Substance: ALFACALCIDOL
     Dosage: 1 MILLIGRAM WEEK ENDS
  7. ZYLORIC [Concomitant]
     Active Substance: ALLOPURINOL
     Dosage: 300 MILLIGRAM
  8. ONE ALPHA [Concomitant]
     Active Substance: ALFACALCIDOL
     Dosage: 0.5 MILLIGRAM WEEK DAY
  9. PHOSPHOLOW [Concomitant]
  10. MIMPARA [Suspect]
     Active Substance: CINACALCET HYDROCHLORIDE
     Indication: PRODUCT USED FOR UNKNOWN INDICATION
     Dosage: 30 MILLIGRAM
     Route: 065
     Dates: start: 202105
  11. ASPICOR [Concomitant]
  12. DIAMINE [DIPHENHYDRAMINE HYDROCHLORIDE] [Concomitant]
  13. ATACAND [Concomitant]
     Active Substance: CANDESARTAN CILEXETIL
     Dosage: 16 MILLIGRAM
  14. NEXIUM I.V. [Concomitant]
     Active Substance: ESOMEPRAZOLE SODIUM
     Dosage: 40 MILLIGRAM

REACTIONS (1)
  - Hypertensive crisis [Unknown]

NARRATIVE: CASE EVENT DATE: 2021
